FAERS Safety Report 25550177 (Version 2)
Quarter: 2025Q3

REPORT INFORMATION
  Report Type: Spontaneous
  Country: JP (occurrence: JP)
  Receive Date: 20250714
  Receipt Date: 20250806
  Transmission Date: 20251021
  Serious: No
  Sender: MYLAN
  Company Number: JP-MYLANLABS-2025M1056835

PATIENT
  Sex: Female

DRUGS (4)
  1. EPIPEN [Suspect]
     Active Substance: EPINEPHRINE
     Indication: Product used for unknown indication
  2. EPIPEN [Suspect]
     Active Substance: EPINEPHRINE
     Route: 065
  3. EPIPEN [Suspect]
     Active Substance: EPINEPHRINE
     Route: 065
  4. EPIPEN [Suspect]
     Active Substance: EPINEPHRINE

REACTIONS (4)
  - Product quality issue [Unknown]
  - Liquid product physical issue [Unknown]
  - Product storage error [Unknown]
  - Product colour issue [Unknown]

NARRATIVE: CASE EVENT DATE: 20250701
